FAERS Safety Report 6822098-3 (Version None)
Quarter: 2010Q3

REPORT INFORMATION
  Report Type: 
  Country: None (occurrence: None)
  Receive Date: 20100706
  Receipt Date: 20100621
  Transmission Date: 20110219
  Serious: Yes (Hospitalization)
  Sender: FDA-Public Use
  Company Number: 2010MA000160

PATIENT
  Age: 39 Year
  Sex: Female

DRUGS (7)
  1. CARBAMAZEPINE [Suspect]
     Indication: EPILEPSY
     Dosage: 700 MG; PO
     Route: 048
  2. CITALOPRAM HYDROBROMIDE [Suspect]
     Indication: DEPRESSED MOOD
     Dosage: 10 MG;PO
     Route: 048
  3. ACETAMINOPHEN AND CODEINE PHOSPHATE [Concomitant]
  4. DICLOFENAC SODIUM [Concomitant]
  5. BECLOMETHASONE DIPROPIONATE [Concomitant]
  6. TEMAZEPAM [Concomitant]
  7. SALBUTAMOL [Concomitant]

REACTIONS (6)
  - BLOOD SODIUM DECREASED [None]
  - CONFUSIONAL STATE [None]
  - CONVULSION [None]
  - DELUSION [None]
  - SOCIAL PROBLEM [None]
  - TREATMENT NONCOMPLIANCE [None]
